FAERS Safety Report 4951686-4 (Version None)
Quarter: 2006Q1

REPORT INFORMATION
  Report Type: 
  Country: None (occurrence: None)
  Receive Date: 20060320
  Receipt Date: 20060310
  Transmission Date: 20060701
  Serious: Yes (Hospitalization, Other)
  Sender: FDA-Public Use
  Company Number: 2005-12-0618

PATIENT
  Age: 70 Year
  Sex: Male

DRUGS (41)
  1. RINDERON-VG LOTION [Suspect]
     Indication: RASH
     Dosage: TOP-DERM
     Route: 061
     Dates: start: 20051019, end: 20051028
  2. PREDONINE TABLETS [Suspect]
     Indication: IDIOPATHIC PULMONARY FIBROSIS
     Dosage: SEE IMAGE
     Route: 048
  3. PREDONINE TABLETS [Suspect]
     Indication: IDIOPATHIC PULMONARY FIBROSIS
     Dosage: SEE IMAGE
     Route: 048
  4. PREDONINE TABLETS [Suspect]
     Indication: IDIOPATHIC PULMONARY FIBROSIS
     Dosage: SEE IMAGE
     Route: 048
  5. PREDONINE TABLETS [Suspect]
     Indication: IDIOPATHIC PULMONARY FIBROSIS
     Dosage: SEE IMAGE
     Route: 048
     Dates: start: 20010101
  6. PREDONINE TABLETS [Suspect]
     Indication: IDIOPATHIC PULMONARY FIBROSIS
     Dosage: SEE IMAGE
     Route: 048
     Dates: start: 20010101
  7. PREDONINE TABLETS [Suspect]
     Indication: IDIOPATHIC PULMONARY FIBROSIS
     Dosage: SEE IMAGE
     Route: 048
     Dates: start: 20041023
  8. PREDONINE TABLETS [Suspect]
     Indication: IDIOPATHIC PULMONARY FIBROSIS
     Dosage: SEE IMAGE
     Route: 048
     Dates: start: 20041119
  9. PREDONINE TABLETS [Suspect]
     Indication: IDIOPATHIC PULMONARY FIBROSIS
     Dosage: SEE IMAGE
     Route: 048
     Dates: start: 20050513
  10. S-7701 (BLINDED PIRFENIDONE) TABLETS [Suspect]
     Indication: IDIOPATHIC PULMONARY FIBROSIS
     Dosage: SEE IMAGE
     Route: 048
     Dates: start: 20050708, end: 20050722
  11. S-7701 (BLINDED PIRFENIDONE) TABLETS [Suspect]
     Indication: IDIOPATHIC PULMONARY FIBROSIS
     Dosage: SEE IMAGE
     Route: 048
     Dates: start: 20050722, end: 20050805
  12. S-7701 (BLINDED PIRFENIDONE) TABLETS [Suspect]
     Indication: IDIOPATHIC PULMONARY FIBROSIS
     Dosage: SEE IMAGE
     Route: 048
     Dates: start: 20050805, end: 20060217
  13. BAKTAR [Concomitant]
  14. CLARITHROMYCIN [Concomitant]
  15. LENDORMIN [Concomitant]
  16. FUNGIZONE [Concomitant]
  17. ZANTAC [Concomitant]
  18. FOSAMAX [Concomitant]
  19. TAKA-DIASTASE ORAL [Concomitant]
  20. MAGNESIUM OXIDE [Concomitant]
  21. EURAX [Concomitant]
  22. MYSER (DIFLUPREDNATE) [Concomitant]
  23. MYSER (DIFLUPREDNATE) [Concomitant]
  24. DIACORT [Concomitant]
  25. HIRUDOID [Concomitant]
  26. NERISONA [Concomitant]
  27. PANDEL [Concomitant]
  28. VOLTAREN [Concomitant]
  29. LOXONIN [Concomitant]
  30. LACTATED RINGER'S [Concomitant]
  31. NEOPRAMIEL [Concomitant]
  32. PANSPORIN [Concomitant]
  33. SODIUM CHLORIDE [Concomitant]
  34. TANNALBIN [Concomitant]
  35. LACTOMIN [Concomitant]
  36. TIQUIZIUM BROMIDE [Concomitant]
  37. REBAMIPIDE [Concomitant]
  38. BIOFERMIN [Concomitant]
  39. BIOFERMIN [Concomitant]
  40. DICLOFENAC SODIUM [Concomitant]
  41. DICLOFENAC SODIUM [Concomitant]

REACTIONS (4)
  - ADENOSQUAMOUS CELL LUNG CANCER [None]
  - OSTEONECROSIS [None]
  - PNEUMOCYSTIS JIROVECI PNEUMONIA [None]
  - RASH [None]
